FAERS Safety Report 19381729 (Version 4)
Quarter: 2021Q3

REPORT INFORMATION
  Report Type: Spontaneous
  Country: US (occurrence: US)
  Receive Date: 20210607
  Receipt Date: 20210724
  Transmission Date: 20211014
  Serious: Yes (Other)
  Sender: FDA-Public Use
  Company Number: US-LUPIN PHARMACEUTICALS INC.-2021-08522

PATIENT
  Sex: Male
  Weight: 79.82 kg

DRUGS (6)
  1. COVID?19 VACCINE [Concomitant]
     Dosage: UNK (SECOND DOSE IN LEFT ARM)
     Route: 065
     Dates: start: 20210121
  2. XARELTO [Concomitant]
     Active Substance: RIVAROXABAN
     Indication: BRONCHITIS
     Dosage: UNK
     Route: 065
  3. CEPHALEXIN CAPSULES USP, 500 MG [Suspect]
     Active Substance: CEPHALEXIN
     Indication: BRONCHITIS
     Dosage: 1 DOSAGE FORM, TID
     Route: 065
     Dates: start: 2021
  4. OMNICEF [Concomitant]
     Active Substance: CEFDINIR
     Indication: BRONCHITIS
     Dosage: UNK
     Route: 065
  5. COVID?19 VACCINE [Concomitant]
     Indication: COVID-19
     Dosage: UNK (FIRST DOSE IN LEFT ARM)
     Route: 065
     Dates: start: 20201231
  6. COSENTYX [Concomitant]
     Active Substance: SECUKINUMAB
     Indication: PSORIATIC ARTHROPATHY
     Dosage: UNK
     Route: 065

REACTIONS (2)
  - Drug ineffective [Unknown]
  - Pulmonary embolism [Unknown]
